FAERS Safety Report 8540327 (Version 2)
Quarter: 2013Q1

REPORT INFORMATION
  Report Type: Spontaneous
  Country: US (occurrence: US)
  Receive Date: 20120502
  Receipt Date: 20130102
  Transmission Date: 20140127
  Serious: Yes (Hospitalization)
  Sender: FDA-Public Use
  Company Number: US-BAYER-2012-041630

PATIENT
  Age: 25 Year
  Sex: Female
  Weight: 68.03 kg

DRUGS (12)
  1. YASMIN [Suspect]
     Indication: CONTRACEPTION
     Dosage: UNK
     Dates: start: 2005, end: 2008
  2. YASMIN [Suspect]
     Indication: PREMENSTRUAL SYNDROME
  3. METFORMIN [Concomitant]
     Dosage: 500 MG, UNK
  4. CEPHALEXIN [Concomitant]
     Indication: URINE ANALYSIS ABNORMAL
     Dosage: 500 MG, UNK
  5. FIBERCON [Concomitant]
  6. ROLAIDS [Concomitant]
  7. GAS-X [Concomitant]
  8. MILK OF MAGNESIA [Concomitant]
  9. PRILOSEC [Concomitant]
  10. CHLORAL HYDRATE [Concomitant]
  11. AMOX-CLAV [Concomitant]
  12. EFFEXOR XR [Concomitant]

REACTIONS (7)
  - Cholelithiasis [None]
  - Cholecystitis [None]
  - Injury [None]
  - Abdominal pain upper [None]
  - General physical health deterioration [None]
  - Emotional distress [None]
  - Pain [None]
